FAERS Safety Report 5838510-2 (Version None)
Quarter: 2008Q3

REPORT INFORMATION
  Report Type: 
  Country: None (occurrence: None)
  Receive Date: 20080808
  Receipt Date: 20080730
  Transmission Date: 20090109
  Serious: Yes (Hospitalization)
  Sender: FDA-Public Use
  Company Number: JP-JNJFOC-20080603510

PATIENT
  Sex: Female
  Weight: 41 kg

DRUGS (6)
  1. REMICADE [Suspect]
     Route: 042
  2. REMICADE [Suspect]
     Route: 042
  3. REMICADE [Suspect]
     Indication: RHEUMATOID ARTHRITIS
     Dosage: 2 DOSES
     Route: 042
  4. PREDONINE [Suspect]
  5. PREDONINE [Suspect]
     Indication: RHEUMATOID ARTHRITIS
  6. RHEUMATREX [Concomitant]
     Indication: RHEUMATOID ARTHRITIS
     Route: 048

REACTIONS (2)
  - HYPERAMYLASAEMIA [None]
  - PYELONEPHRITIS [None]
